FAERS Safety Report 4631425-7 (Version None)
Quarter: 2005Q2

REPORT INFORMATION
  Report Type: 
  Country: None (occurrence: None)
  Receive Date: 20050407
  Receipt Date: 20050328
  Transmission Date: 20051028
  Serious: Yes (Hospitalization, Other)
  Sender: FDA-Public Use
  Company Number: 200511056BCC

PATIENT
  Age: 73 Year
  Sex: Female
  Weight: 63.5036 kg

DRUGS (13)
  1. BAYER REGIMEN (ACETYLSALICYLIC ACID) [Suspect]
     Indication: MYOCARDIAL INFARCTION
     Dosage: SEE IMAGE
     Dates: end: 20041015
  2. BAYER REGIMEN (ACETYLSALICYLIC ACID) [Suspect]
     Indication: PROPHYLAXIS
     Dosage: SEE IMAGE
     Dates: end: 20041015
  3. BAYER REGIMEN (ACETYLSALICYLIC ACID) [Suspect]
     Indication: MYOCARDIAL INFARCTION
     Dosage: SEE IMAGE
  4. BAYER REGIMEN (ACETYLSALICYLIC ACID) [Suspect]
     Indication: PROPHYLAXIS
     Dosage: SEE IMAGE
  5. BAYER REGIMEN (ACETYLSALICYLIC ACID) [Suspect]
     Indication: MYOCARDIAL INFARCTION
     Dosage: SEE IMAGE
     Dates: start: 20041018
  6. BAYER REGIMEN (ACETYLSALICYLIC ACID) [Suspect]
     Indication: PROPHYLAXIS
     Dosage: SEE IMAGE
     Dates: start: 20041018
  7. BAYER REGIMEN (ACETYLSALICYLIC ACID) [Suspect]
  8. PLAVIX [Suspect]
     Dosage: ORAL
     Route: 048
     Dates: start: 20041001
  9. ZOCOR [Concomitant]
  10. LISINOPRIL [Concomitant]
  11. PRANDIN [Concomitant]
  12. GLYBURIDE [Concomitant]
  13. EYE DROPS [Concomitant]

REACTIONS (2)
  - CEREBROVASCULAR ACCIDENT [None]
  - EPISTAXIS [None]
